FAERS Safety Report 20848322 (Version 1)
Quarter: 2022Q2

REPORT INFORMATION
  Report Type: Spontaneous
  Country: JP (occurrence: JP)
  Receive Date: 20220519
  Receipt Date: 20220519
  Transmission Date: 20220721
  Serious: Yes (Life-Threatening)
  Sender: FDA-Public Use
  Company Number: JP-BAXTER-2022BAX010290

PATIENT
  Age: 68 Year
  Sex: Female
  Weight: 57 kg

DRUGS (8)
  1. DOXORUBICIN [Suspect]
     Active Substance: DOXORUBICIN
     Indication: Ovarian cancer
     Dosage: 95 MG, EVERY 4 WK (3.3929 MG)
     Route: 042
     Dates: start: 20190227, end: 20190227
  2. DOXORUBICIN [Suspect]
     Active Substance: DOXORUBICIN
     Dosage: 45 MG, EVERY 4 WK (1.6071 MG)
     Route: 042
     Dates: start: 20190404, end: 20190404
  3. CARBOPLATIN [Suspect]
     Active Substance: CARBOPLATIN
     Indication: Ovarian cancer
     Dosage: 705 MG, INTRAVENOUS (NOT OTHERWISE SPECIFIED)
     Route: 050
     Dates: start: 20190107, end: 20190107
  4. CARBOPLATIN [Suspect]
     Active Substance: CARBOPLATIN
     Dosage: 610 MG, INTRAVENOUS (NOT OTHERWISE SPECIFIED)
     Route: 050
     Dates: start: 20190206, end: 20190206
  5. CARBOPLATIN [Suspect]
     Active Substance: CARBOPLATIN
     Dosage: 585 MG,  INTRAVENOUS (NOT OTHERWISE SPECIFIED)
     Route: 050
     Dates: start: 20190227, end: 20190227
  6. CARBOPLATIN [Suspect]
     Active Substance: CARBOPLATIN
     Dosage: 520 M,  INTRAVENOUS (NOT OTHERWISE SPECIFIED)
     Route: 050
     Dates: start: 20190404, end: 20190404
  7. DEXAMETHASONE SODIUM PHOSPHATE [Concomitant]
     Active Substance: DEXAMETHASONE SODIUM PHOSPHATE
     Indication: Vomiting
     Dosage: 6.6 MG, QD, INTRAVENOUS (NOT OTHERWISE SPECIFIED)
     Route: 050
     Dates: start: 20190404, end: 20190404
  8. ALOXI [Concomitant]
     Active Substance: PALONOSETRON HYDROCHLORIDE
     Indication: Vomiting
     Dosage: 0.75 G, QD, ?INTRAVENOUS (NOT OTHERWISE SPECIFIED)
     Route: 050
     Dates: start: 20190404, end: 20190404

REACTIONS (1)
  - Pancytopenia [Recovered/Resolved]

NARRATIVE: CASE EVENT DATE: 20190418
